FAERS Safety Report 25110563 (Version 2)
Quarter: 2025Q3

REPORT INFORMATION
  Report Type: Spontaneous
  Country: US (occurrence: US)
  Receive Date: 20250324
  Receipt Date: 20250816
  Transmission Date: 20251020
  Serious: No
  Sender: ALEXION PHARMACEUTICALS
  Company Number: US-AstraZeneca-CH-00829960AM

PATIENT
  Sex: Female
  Weight: 50.802 kg

DRUGS (2)
  1. TRUQAP [Suspect]
     Active Substance: CAPIVASERTIB
     Indication: Breast cancer
     Dosage: 200 DOSAGE FORM, BID
     Dates: start: 20250226
  2. CLARITIN [Concomitant]
     Active Substance: LORATADINE
     Route: 065

REACTIONS (4)
  - Diarrhoea [Unknown]
  - Rash [Unknown]
  - Blood glucose increased [Unknown]
  - White blood cell count decreased [Unknown]
